FAERS Safety Report 15004668 (Version 1)
Quarter: 2018Q2

REPORT INFORMATION
  Report Type: Spontaneous
  Country: FR (occurrence: FR)
  Receive Date: 20180613
  Receipt Date: 20180613
  Transmission Date: 20180711
  Serious: Yes (Death, Hospitalization)
  Sender: FDA-Public Use
  Company Number: FR-TEVA-2018-FR-906025

PATIENT
  Age: 93 Year
  Sex: Female

DRUGS (11)
  1. PREVISCAN 20 MG, COMPRIM? S?CABLE [Suspect]
     Active Substance: FLUINDIONE
     Dosage: SCORED;1 DAY
     Route: 048
     Dates: end: 20150919
  2. ULTRAVIST [Suspect]
     Active Substance: IOPROMIDE
     Indication: COMPUTERISED TOMOGRAM
     Dosage: 27 GRAMS;SOLUTION INJECTABLE
     Route: 065
     Dates: start: 20150905, end: 20150905
  3. BACTRIM [Suspect]
     Active Substance: SULFAMETHOXAZOLE\TRIMETHOPRIM
     Route: 048
     Dates: start: 20150909, end: 20150918
  4. DEBRIDAT [Concomitant]
     Active Substance: TRIMEBUTINE MALEATE
  5. LERCAN [Concomitant]
     Active Substance: LERCANIDIPINE
  6. TEMERIT [Concomitant]
     Active Substance: NEBIVOLOL
  7. TAHOR [Concomitant]
     Active Substance: ATORVASTATIN CALCIUM
  8. COVERSYL 5 MG, COMPRIM? PELLICUL? S?CABLE [Concomitant]
     Route: 048
  9. FUROSEMIDE. [Suspect]
     Active Substance: FUROSEMIDE
     Dosage: 40 MILLIGRAM DAILY;
     Route: 048
     Dates: end: 20150919
  10. FORLAX [Concomitant]
     Active Substance: POLYETHYLENE GLYCOL 4000
  11. LEXOMIL ROCHE [Concomitant]
     Active Substance: BROMAZEPAM

REACTIONS (1)
  - Acute kidney injury [Recovered/Resolved]

NARRATIVE: CASE EVENT DATE: 20150919
